FAERS Safety Report 5621201-0 (Version None)
Quarter: 2008Q1

REPORT INFORMATION
  Report Type: 
  Country: None (occurrence: None)
  Receive Date: 20080114
  Receipt Date: 20061212
  Transmission Date: 20080703
  Serious: Yes (Hospitalization)
  Sender: FDA-Public Use
  Company Number: A03200607602

PATIENT
  Age: 79 Year
  Sex: Female

DRUGS (6)
  1. PLAVIX [Suspect]
     Indication: BLOOD CHOLESTEROL INCREASED
     Dosage: 75 MG QD - ORAL
     Route: 048
     Dates: start: 20060616
  2. ACETYLSALICYLIC ACID SRT [Concomitant]
  3. PREGABALIN [Concomitant]
  4. FENOFIBRATE [Concomitant]
  5. CORTICOTROPIN [Concomitant]
  6. INSULIN [Concomitant]

REACTIONS (1)
  - CEREBROVASCULAR ACCIDENT [None]
